FAERS Safety Report 12243767 (Version 1)
Quarter: 2016Q2

REPORT INFORMATION
  Report Type: Report from Study
  Country: US (occurrence: US)
  Receive Date: 20160406
  Receipt Date: 20160406
  Transmission Date: 20160815
  Serious: No
  Sender: FDA-Public Use
  Company Number: PHEH2016US007935

PATIENT
  Age: 15 Year
  Sex: Female

DRUGS (3)
  1. ORENCIA [Suspect]
     Active Substance: ABATACEPT
     Indication: PRODUCT USED FOR UNKNOWN INDICATION
     Route: 065
  2. ACTEMRA [Suspect]
     Active Substance: TOCILIZUMAB
     Indication: PRODUCT USED FOR UNKNOWN INDICATION
     Route: 065
  3. ILARIS [Suspect]
     Active Substance: CANAKINUMAB
     Indication: PRODUCT USED FOR UNKNOWN INDICATION
     Route: 058

REACTIONS (9)
  - Pyrexia [Unknown]
  - Blood iron abnormal [Unknown]
  - Decreased appetite [Unknown]
  - Feeling of despair [Unknown]
  - Arthralgia [Unknown]
  - Red blood cell sedimentation rate decreased [Unknown]
  - Hypokinesia [Unknown]
  - Nausea [Unknown]
  - Weight decreased [Unknown]
